FAERS Safety Report 6249527-0 (Version None)
Quarter: 2009Q2

REPORT INFORMATION
  Report Type: 
  Country: None (occurrence: None)
  Receive Date: 20090629
  Receipt Date: 20081118
  Transmission Date: 20091009
  Serious: No
  Sender: FDA-Public Use
  Company Number: A0757253A

PATIENT
  Age: 73 Year
  Sex: Male

DRUGS (5)
  1. ZYBAN [Suspect]
     Indication: DRUG USE FOR UNKNOWN INDICATION
     Route: 048
  2. BUPROPION HYDROCHLORIDE [Suspect]
     Indication: SMOKING CESSATION THERAPY
     Dosage: 150MG VARIABLE DOSE
     Route: 048
     Dates: start: 20081021
  3. LISTERINE WHITENING PRE-BRUSH RINSE [Suspect]
     Dates: start: 20081027
  4. CREST ORAL RINSE [Suspect]
     Route: 048
     Dates: start: 20081101
  5. UNKNOWN [Concomitant]

REACTIONS (3)
  - AGEUSIA [None]
  - DRY MOUTH [None]
  - DYSGEUSIA [None]
